FAERS Safety Report 25039272 (Version 1)
Quarter: 2025Q1

REPORT INFORMATION
  Report Type: Spontaneous
  Country: US (occurrence: US)
  Receive Date: 20250305
  Receipt Date: 20250305
  Transmission Date: 20250409
  Serious: No
  Sender: APOTEX
  Company Number: US-APOTEX-2025AP002702

PATIENT
  Age: 15 Year
  Sex: Male

DRUGS (4)
  1. ATROPINE [Suspect]
     Active Substance: ATROPINE
     Indication: Myopia
     Dosage: 0.01 PERCENT, QD
  2. ATROPINE [Suspect]
     Active Substance: ATROPINE
     Dosage: 0.05 PERCENT, QD
  3. ATROPINE [Suspect]
     Active Substance: ATROPINE
     Dosage: 0.1 PERCENT, QD
  4. ATROPINE [Suspect]
     Active Substance: ATROPINE
     Dosage: 0.2 PERCENT, QD

REACTIONS (1)
  - Strabismus [Recovered/Resolved]
